FAERS Safety Report 4801370-2 (Version None)
Quarter: 2005Q4

REPORT INFORMATION
  Report Type: 
  Country: None (occurrence: None)
  Receive Date: 20051012
  Receipt Date: 20050928
  Transmission Date: 20060501
  Serious: Yes (Death)
  Sender: FDA-Public Use
  Company Number: 2005-CZ-00416

PATIENT
  Age: 28 Year
  Sex: Female

DRUGS (3)
  1. DIAZEPAM TABLETS BP 5 MG (DIAZEPAM) [Suspect]
  2. AMITRIPTYLINE HCL [Suspect]
     Indication: DEPRESSION
     Dosage: ORAL
     Route: 048
  3. MORPHINE [Suspect]

REACTIONS (1)
  - DRUG INTERACTION [None]
